FAERS Safety Report 5498643-X (Version None)
Quarter: 2007Q4

REPORT INFORMATION
  Report Type: 
  Country: None (occurrence: None)
  Receive Date: 20071024
  Receipt Date: 20071015
  Transmission Date: 20080405
  Serious: Yes (Hospitalization)
  Sender: FDA-Public Use
  Company Number: 2007AL004380

PATIENT
  Age: 47 Year
  Sex: Male

DRUGS (12)
  1. DOXAZOSIN MESYLATE [Suspect]
     Dosage: PO
     Route: 048
  2. PROCYCLIDINE HYDROCHLORIDE 2MG TAB [Concomitant]
  3. ATENOLOL [Concomitant]
  4. HALOPERIDOL [Concomitant]
  5. ZOPICLONE [Concomitant]
  6. OMEPRAZOLE [Concomitant]
  7. RIFAMPICIN [Concomitant]
  8. LINEZOLID [Concomitant]
  9. PANTOPRAZOLE SODIUM [Concomitant]
  10. FENTANYL [Concomitant]
  11. AMISULPRIDE [Concomitant]
  12. PANTOPRAZOLE SODIUM [Concomitant]

REACTIONS (2)
  - BLOOD PRESSURE SYSTOLIC INCREASED [None]
  - DRUG INTERACTION [None]
